FAERS Safety Report 23420371 (Version 1)
Quarter: 2024Q1

REPORT INFORMATION
  Report Type: Spontaneous
  Country: US (occurrence: US)
  Receive Date: 20240119
  Receipt Date: 20240119
  Transmission Date: 20240409
  Serious: Yes (Hospitalization, Other)
  Sender: FDA-Public Use
  Company Number: US-Accord-401406

PATIENT
  Age: 56 Year
  Sex: Male

DRUGS (4)
  1. FLUOROURACIL [Suspect]
     Active Substance: FLUOROURACIL
     Indication: Squamous cell carcinoma
     Dosage: DAYS ONE TO FOUR AND DAYS 29-32
  2. MITOMYCIN [Suspect]
     Active Substance: MITOMYCIN
     Indication: Squamous cell carcinoma
     Dosage: MAXIMAL 20 MG PER DOSE ON DAY ONE AND DAY 29
  3. FLUOROURACIL [Suspect]
     Active Substance: FLUOROURACIL
     Indication: Anal cancer stage III
     Dosage: DAYS ONE TO FOUR AND DAYS 29-32
  4. MITOMYCIN [Suspect]
     Active Substance: MITOMYCIN
     Indication: Anal cancer stage III
     Dosage: MAXIMAL 20 MG PER DOSE ON DAY ONE AND DAY 29

REACTIONS (8)
  - Neurotoxicity [Recovering/Resolving]
  - Fatigue [Unknown]
  - Vomiting [Unknown]
  - Nausea [Unknown]
  - Hyporeflexia [Unknown]
  - Acute kidney injury [Recovered/Resolved]
  - Off label use [Unknown]
  - Decreased appetite [Unknown]
